FAERS Safety Report 7793781-0 (Version None)
Quarter: 2011Q4

REPORT INFORMATION
  Report Type: 
  Country: None (occurrence: None)
  Receive Date: 20111003
  Receipt Date: 20110920
  Transmission Date: 20120403
  Serious: Yes (Other)
  Sender: FDA-Public Use
  Company Number: PHEH2011US04749

PATIENT
  Sex: Male

DRUGS (5)
  1. VITAMIN D [Concomitant]
     Dosage: 400 U, DAILY
  2. TASIGNA [Suspect]
     Dosage: 400 MG, BID
     Route: 048
  3. LIPITOR [Concomitant]
     Dosage: 10 MG, DAILY
  4. TASIGNA [Suspect]
     Dosage: 400 MG, BID
     Route: 048
     Dates: start: 20110913
  5. METFORMIN HCL [Concomitant]
     Dosage: 500 MG, DAILY

REACTIONS (2)
  - BLOOD GLUCOSE INCREASED [None]
  - HEADACHE [None]
